FAERS Safety Report 10576581 (Version 2)
Quarter: 2014Q4

REPORT INFORMATION
  Report Type: Report from Study
  Country: PR (occurrence: PR)
  Receive Date: 20141111
  Receipt Date: 20141111
  Transmission Date: 20150529
  Serious: Yes (Other)
  Sender: FDA-Public Use
  Company Number: PR-ABBVIE-14P-131-1259015-00

PATIENT
  Age: 36 Year
  Weight: 68.1 kg

DRUGS (1)
  1. HUMIRA [Suspect]
     Active Substance: ADALIMUMAB
     Indication: COLITIS ULCERATIVE
     Route: 058
     Dates: start: 2012, end: 20140625

REACTIONS (2)
  - Hernia [Recovered/Resolved]
  - Abdominal wall cyst [Unknown]

NARRATIVE: CASE EVENT DATE: 20140811
